FAERS Safety Report 21720715 (Version 1)
Quarter: 2022Q4

REPORT INFORMATION
  Report Type: Spontaneous
  Country: GB (occurrence: GB)
  Receive Date: 20221213
  Receipt Date: 20221213
  Transmission Date: 20230113
  Serious: Yes (Life-Threatening, Disabling, Other)
  Sender: FDA-Public Use
  Company Number: GB-MHRA-MED-202212101308220890-YJVSN

PATIENT
  Age: 47 Year
  Sex: Female

DRUGS (1)
  1. LAMOTRIGINE [Suspect]
     Active Substance: LAMOTRIGINE
     Indication: Product used for unknown indication
     Dosage: UNK
     Route: 065

REACTIONS (18)
  - Menstruation irregular [Recovering/Resolving]
  - Dry eye [Not Recovered/Not Resolved]
  - Nasal dryness [Not Recovered/Not Resolved]
  - Vulvovaginal dryness [Not Recovered/Not Resolved]
  - Weight gain poor [Not Recovered/Not Resolved]
  - Diabetes mellitus [Recovering/Resolving]
  - Dry skin [Recovering/Resolving]
  - Infertility female [Not Recovered/Not Resolved]
  - Hypertension [Recovering/Resolving]
  - Gout [Recovering/Resolving]
  - Ovulation delayed [Not Recovered/Not Resolved]
  - Uterine cyst [Not Recovered/Not Resolved]
  - Heavy menstrual bleeding [Recovering/Resolving]
  - Vulvar erosion [Not Recovered/Not Resolved]
  - Pigmentation disorder [Recovering/Resolving]
  - Vision blurred [Not Recovered/Not Resolved]
  - Diplopia [Not Recovered/Not Resolved]
  - Medication error [Unknown]
